FAERS Safety Report 9470055 (Version 1)
Quarter: 2013Q3

REPORT INFORMATION
  Report Type: Spontaneous
  Country: US (occurrence: None)
  Receive Date: 20130820
  Receipt Date: 20130820
  Transmission Date: 20140515
  Serious: Yes (Life-Threatening, Hospitalization)
  Sender: FDA-Public Use
  Company Number: None

PATIENT
  Age: 78 Year
  Sex: Male
  Weight: 99.8 kg

DRUGS (7)
  1. CEFTAROLINE [Suspect]
     Indication: ARTHRITIS BACTERIAL
     Route: 042
     Dates: start: 20130715, end: 20130812
  2. CEFTAROLINE [Suspect]
     Indication: POST PROCEDURAL COMPLICATION
     Route: 042
     Dates: start: 20130715, end: 20130812
  3. VANCOMYCIN [Concomitant]
  4. DAPTOMYCIN [Concomitant]
  5. CEFTAROLINE [Concomitant]
  6. RIFAMPIN [Concomitant]
  7. LUPRON [Concomitant]

REACTIONS (5)
  - Nausea [None]
  - Neutropenia [None]
  - White blood cell count decreased [None]
  - Blood culture positive [None]
  - Staphylococcus test positive [None]
